FAERS Safety Report 17036750 (Version 1)
Quarter: 2019Q4

REPORT INFORMATION
  Report Type: Spontaneous
  Country: FR (occurrence: FR)
  Receive Date: 20191115
  Receipt Date: 20191115
  Transmission Date: 20200122
  Serious: Yes (Hospitalization, Other)
  Sender: FDA-Public Use
  Company Number: FR-PFIZER INC-2019493494

PATIENT
  Age: 77 Year
  Sex: Female
  Weight: 67.5 kg

DRUGS (4)
  1. SULFAMETHOXAZOLE [Interacting]
     Active Substance: SULFAMETHOXAZOLE
     Indication: PYELONEPHRITIS ACUTE
     Dosage: UNK
     Route: 048
     Dates: start: 20190929, end: 20191008
  2. TRIMETHOPRIME [Interacting]
     Active Substance: TRIMETHOPRIM
     Indication: PYELONEPHRITIS ACUTE
     Dosage: UNK
     Route: 048
     Dates: start: 20190929, end: 20191008
  3. FUROSEMIDE. [Interacting]
     Active Substance: FUROSEMIDE
     Indication: CARDIAC FAILURE
     Dosage: UNK
     Route: 048
     Dates: end: 20191009
  4. RAMIPRIL. [Suspect]
     Active Substance: RAMIPRIL
     Indication: CARDIAC FAILURE
     Dosage: 2.5 MG, QD
     Route: 048
     Dates: end: 20191009

REACTIONS (3)
  - Acute kidney injury [Recovered/Resolved]
  - Drug interaction [Unknown]
  - Hyperkalaemia [Recovered/Resolved]

NARRATIVE: CASE EVENT DATE: 20191003
